FAERS Safety Report 4522311-1 (Version None)
Quarter: 2004Q4

REPORT INFORMATION
  Report Type: 
  Country: None (occurrence: None)
  Receive Date: 20041207
  Receipt Date: 20041124
  Transmission Date: 20050328
  Serious: Yes (Hospitalization)
  Sender: FDA-Public Use
  Company Number: USA040977146

PATIENT
  Age: 35 Year
  Sex: Male

DRUGS (5)
  1. ALIMTA [Suspect]
     Indication: NON-SMALL CELL LUNG CANCER
     Dosage: 1100 MG OTHER
     Dates: start: 20040714, end: 20040824
  2. CISPLATIN [Concomitant]
  3. PROCRIT (ERYTHROPOIETIN) [Concomitant]
  4. VITAMIN B-12 [Concomitant]
  5. DEXAMETHASONE [Concomitant]

REACTIONS (2)
  - ALOPECIA [None]
  - SKIN HYPERPIGMENTATION [None]
